FAERS Safety Report 14556854 (Version 2)
Quarter: 2018Q2

REPORT INFORMATION
  Report Type: Spontaneous
  Country: RU (occurrence: RU)
  Receive Date: 20180221
  Receipt Date: 20180612
  Transmission Date: 20180711
  Serious: Yes (Other)
  Sender: FDA-Public Use
  Company Number: RU-ASTRAZENECA-2018SE21150

PATIENT
  Age: 72 Year
  Sex: Female
  Weight: 62 kg

DRUGS (7)
  1. NOLPAZA [Concomitant]
     Active Substance: PANTOPRAZOLE SODIUM
  2. CONCOR [Concomitant]
     Active Substance: BISOPROLOL FUMARATE
  3. PERINEVA [Concomitant]
     Active Substance: PERINDOPRIL ERBUMINE
  4. ATORVASTATIN [Concomitant]
     Active Substance: ATORVASTATIN
  5. BRILINTA [Suspect]
     Active Substance: TICAGRELOR
     Indication: MYOCARDIAL INFARCTION
     Route: 048
     Dates: start: 201711
  6. ASPIRIN CARDIO [Concomitant]
     Active Substance: ASPIRIN
  7. EGILOK [Concomitant]
     Active Substance: METOPROLOL TARTRATE

REACTIONS (3)
  - Dyspnoea [Not Recovered/Not Resolved]
  - Angina unstable [Recovered/Resolved]
  - Headache [Not Recovered/Not Resolved]

NARRATIVE: CASE EVENT DATE: 2018
